FAERS Safety Report 8220118-5 (Version None)
Quarter: 2012Q1

REPORT INFORMATION
  Report Type: 
  Country: None (occurrence: None)
  Receive Date: 20120320
  Receipt Date: 20120312
  Transmission Date: 20120608
  Serious: No
  Sender: FDA-Public Use
  Company Number: US-BIOGENIDEC-2012BI008768

PATIENT
  Age: 49 Year
  Sex: Female

DRUGS (2)
  1. BLOOD THINNERS [Concomitant]
     Indication: COAGULOPATHY
  2. AVONEX [Suspect]
     Indication: MULTIPLE SCLEROSIS
     Route: 030
     Dates: start: 20111214

REACTIONS (4)
  - INSOMNIA [None]
  - MULTIPLE SCLEROSIS [None]
  - PSYCHOMOTOR HYPERACTIVITY [None]
  - PARANOIA [None]
